FAERS Safety Report 17771077 (Version 1)
Quarter: 2020Q2

REPORT INFORMATION
  Report Type: Spontaneous
  Country: US (occurrence: US)
  Receive Date: 20200512
  Receipt Date: 20200512
  Transmission Date: 20200714
  Serious: Yes (Hospitalization)
  Sender: FDA-Public Use
  Company Number: US-AMGEN-USASP2020073419

PATIENT
  Age: 40 Year
  Sex: Male

DRUGS (3)
  1. XGEVA [Suspect]
     Active Substance: DENOSUMAB
     Indication: HYPERCALCAEMIA
     Dosage: 120 MILLIGRAM
     Route: 058
  2. CINACALCET HCL [Suspect]
     Active Substance: CINACALCET HYDROCHLORIDE
     Indication: HYPERCALCAEMIA
     Dosage: UNK
     Route: 065
  3. CINACALCET HCL [Suspect]
     Active Substance: CINACALCET HYDROCHLORIDE
     Dosage: 90 MILLIGRAM, TID
     Route: 065

REACTIONS (8)
  - Blood creatinine increased [Unknown]
  - Off label use [Unknown]
  - Weight decreased [Unknown]
  - Blood calcium increased [Unknown]
  - Dehydration [Unknown]
  - Blood parathyroid hormone increased [Unknown]
  - Drug ineffective [Unknown]
  - Hypocalcaemia [Unknown]

NARRATIVE: CASE EVENT DATE: 2012
